FAERS Safety Report 8315070-8 (Version None)
Quarter: 2012Q2

REPORT INFORMATION
  Report Type: 
  Country: None (occurrence: None)
  Receive Date: 20120426
  Receipt Date: 20120418
  Transmission Date: 20120825
  Serious: Yes (Hospitalization)
  Sender: FDA-Public Use
  Company Number: JP-JNJFOC-20120409758

PATIENT
  Sex: Female
  Weight: 149.8 kg

DRUGS (1)
  1. TAPENTADOL HYDROCHLORIDE [Suspect]
     Indication: CANCER PAIN
     Dosage: TWICE A DAY
     Route: 048
     Dates: start: 20120327, end: 20120417

REACTIONS (12)
  - FALL [None]
  - NAUSEA [None]
  - DEPRESSED LEVEL OF CONSCIOUSNESS [None]
  - SUBDURAL HAEMATOMA [None]
  - FIBRIN D DIMER INCREASED [None]
  - TIC [None]
  - SUBDURAL HYGROMA [None]
  - VOMITING [None]
  - HEAD INJURY [None]
  - DECREASED APPETITE [None]
  - BLOOD GLUCOSE INCREASED [None]
  - TRAUMATIC HAEMATOMA [None]
